FAERS Safety Report 17303186 (Version 2)
Quarter: 2020Q1

REPORT INFORMATION
  Report Type: Spontaneous
  Country: US (occurrence: US)
  Receive Date: 20200122
  Receipt Date: 20200213
  Transmission Date: 20200409
  Serious: No
  Sender: FDA-Public Use
  Company Number: US-SA-2020SA013907

PATIENT

DRUGS (1)
  1. DUPIXENT [Suspect]
     Active Substance: DUPILUMAB
     Dosage: 300 MG, QOW
     Route: 058

REACTIONS (6)
  - Nausea [Unknown]
  - Conjunctivitis [Unknown]
  - Vision blurred [Unknown]
  - Eye pain [Unknown]
  - Drug ineffective [Unknown]
  - Dry eye [Unknown]
